FAERS Safety Report 5536321-9 (Version None)
Quarter: 2007Q4

REPORT INFORMATION
  Report Type: 
  Country: None (occurrence: None)
  Receive Date: 20071206
  Receipt Date: 20071127
  Transmission Date: 20080405
  Serious: Yes (Other)
  Sender: FDA-Public Use
  Company Number: US-PFIZER INC-2007080453

PATIENT
  Sex: Female
  Weight: 72.6 kg

DRUGS (2)
  1. CHANTIX [Suspect]
     Indication: EX-SMOKER
     Route: 048
  2. LAMICTAL [Concomitant]

REACTIONS (5)
  - DISABILITY [None]
  - FEELING ABNORMAL [None]
  - MANIA [None]
  - MENTAL IMPAIRMENT [None]
  - MOOD SWINGS [None]
